FAERS Safety Report 9240024 (Version 2)
Quarter: 2013Q2

REPORT INFORMATION
  Report Type: Spontaneous
  Country: US (occurrence: None)
  Receive Date: 20130417
  Receipt Date: 20130514
  Transmission Date: 20140414
  Serious: Yes (Death)
  Sender: FDA-Public Use
  Company Number: 2013-125

PATIENT
  Age: 20 Year
  Sex: Male

DRUGS (2)
  1. PRIALT (ZICONOTIDE) INTRATHECAL INFUSION [Suspect]
     Route: 037
  2. DILAUDID (HYDROMORPHONE HYDROCHLORIDE) INJECTION [Suspect]
     Route: 037

REACTIONS (5)
  - Respiratory failure [None]
  - Metastases to pelvis [None]
  - Metastases to lung [None]
  - Azotaemia [None]
  - Renal failure [None]
